FAERS Safety Report 9341693 (Version 5)
Quarter: 2013Q3

REPORT INFORMATION
  Report Type: Spontaneous
  Country: US (occurrence: US)
  Receive Date: 20130611
  Receipt Date: 20130918
  Transmission Date: 20140515
  Serious: No
  Sender: FDA-Public Use
  Company Number: US-PFIZER INC-2013174281

PATIENT
  Age: 68 Year
  Sex: Female
  Weight: 79.37 kg

DRUGS (14)
  1. SUTENT [Suspect]
     Indication: RENAL CELL CARCINOMA
     Dosage: 25 MG, UNK
     Dates: start: 20130529
  2. SUTENT [Suspect]
     Dosage: 50 MG, CYCLIC (FOUR WEEKS ON AND TWO WEEKS OFF)
     Dates: start: 20130601
  3. SUTENT [Suspect]
     Dosage: 50 MG, UNK
     Dates: start: 20130605
  4. SUTENT [Suspect]
     Dosage: 50 MG, UNK
     Dates: start: 20130712
  5. SUTENT [Suspect]
     Dosage: UNK
     Dates: end: 20130828
  6. L-THYROXIN [Concomitant]
     Indication: HYPOTHYROIDISM
     Dosage: UNK
  7. TRICOR [Concomitant]
     Indication: BLOOD CHOLESTEROL INCREASED
     Dosage: 145 MG, DAILY
     Route: 048
  8. LEVOTHYROXINE [Concomitant]
     Indication: THYROID DISORDER
     Dosage: 50 UG, DAILY
  9. OXYCODONE [Concomitant]
     Indication: ARTHRALGIA
     Dosage: 5 MG, AS NEEDED
  10. ZOLOFT [Concomitant]
     Dosage: 50 MG, 1X/DAY
     Route: 048
  11. ZOFRAN [Concomitant]
     Dosage: 8 MG, EVERY 8 HOURS AS NEEDED
  12. AMBIEN [Concomitant]
     Dosage: 5 MG, 1X/DAY [NIGHTLY]
     Route: 048
  13. RED YEAST RICE [Concomitant]
     Dosage: 600 MG, 2 TABLETS TWICE A DAY
  14. TYLENOL [Concomitant]
     Dosage: 650 MG, EVERY 6 HOURS AS NEEDED
     Route: 048

REACTIONS (10)
  - Nausea [Not Recovered/Not Resolved]
  - Alopecia [Unknown]
  - Insomnia [Not Recovered/Not Resolved]
  - Weight increased [Unknown]
  - Fatigue [Not Recovered/Not Resolved]
  - Abdominal pain [Recovered/Resolved]
  - Abdominal distension [Unknown]
  - Flatulence [Unknown]
  - Disease progression [Unknown]
  - Renal cell carcinoma [Unknown]
